FAERS Safety Report 5480207-5 (Version None)
Quarter: 2007Q4

REPORT INFORMATION
  Report Type: 
  Country: None (occurrence: None)
  Receive Date: 20071003
  Receipt Date: 20070918
  Transmission Date: 20080405
  Serious: Yes (Death, Other)
  Sender: FDA-Public Use
  Company Number: 2007RR-09524

PATIENT
  Age: 26 Year
  Sex: Female
  Weight: 75.4 kg

DRUGS (7)
  1. FLUOXETINE [Suspect]
  2. TRIMEPRAZINE(TRIMEPRAZINE) [Suspect]
  3. ZYPREXA [Suspect]
     Dosage: 5 MG, TID
     Dates: start: 20051220
  4. DIAZEPAM TABLETS (DIAZEPAM) [Concomitant]
  5. MICROGYNON (ETHINYLESTRADIOL, LEVONOGESTREL) [Concomitant]
  6. NITRAZEPAM TALETS BP 5MG (NITRAZEPAM) [Concomitant]
  7. PARACETAMOL CAPSULES 500MG (ACETAMINOPHEN/PARACETAMOL) [Concomitant]

REACTIONS (20)
  - ABNORMAL BEHAVIOUR [None]
  - ACUTE RESPIRATORY DISTRESS SYNDROME [None]
  - ARRHYTHMIA [None]
  - CARDIAC FAILURE ACUTE [None]
  - COLD SWEAT [None]
  - COUGH [None]
  - DEPRESSED LEVEL OF CONSCIOUSNESS [None]
  - DRUG CLEARANCE DECREASED [None]
  - DRUG LEVEL INCREASED [None]
  - EMOTIONAL DISTRESS [None]
  - FALL [None]
  - HEADACHE [None]
  - HYPERHIDROSIS [None]
  - ILL-DEFINED DISORDER [None]
  - LOWER RESPIRATORY TRACT INFECTION [None]
  - PALLOR [None]
  - PNEUMONIA ASPIRATION [None]
  - PULMONARY OEDEMA [None]
  - SUDDEN DEATH [None]
  - SYNCOPE [None]
